FAERS Safety Report 12553399 (Version 3)
Quarter: 2016Q3

REPORT INFORMATION
  Report Type: Spontaneous
  Country: US (occurrence: US)
  Receive Date: 20160713
  Receipt Date: 20160728
  Transmission Date: 20161109
  Serious: Yes (Hospitalization, Other)
  Sender: FDA-Public Use
  Company Number: US-BAYER-2016-133749

PATIENT
  Sex: Female

DRUGS (3)
  1. DEPO-PROGESTIN [Suspect]
     Active Substance: MEDROXYPROGESTERONE ACETATE
  2. ZOLOFT [Suspect]
     Active Substance: SERTRALINE HYDROCHLORIDE
     Dosage: UNK
     Dates: end: 20160422
  3. CLIMARA [Suspect]
     Active Substance: ESTRADIOL
     Route: 062

REACTIONS (13)
  - Anxiety [None]
  - Drug withdrawal syndrome [None]
  - Overdose [None]
  - Fat tissue increased [None]
  - Decreased appetite [None]
  - Serotonin syndrome [None]
  - Tinnitus [None]
  - Feeling abnormal [None]
  - Mental disorder [None]
  - Drug interaction [Not Recovered/Not Resolved]
  - Seizure [None]
  - Off label use [None]
  - Disturbance in attention [None]

NARRATIVE: CASE EVENT DATE: 20160514
